FAERS Safety Report 6442461-2 (Version None)
Quarter: 2009Q4

REPORT INFORMATION
  Report Type: 
  Country: None (occurrence: None)
  Receive Date: 20091112
  Receipt Date: 20091027
  Transmission Date: 20100525
  Serious: Yes (Other)
  Sender: FDA-Public Use
  Company Number: AUR-APL-2009-01086

PATIENT
  Age: 68 Year
  Sex: Male

DRUGS (1)
  1. GLYBURIDE [Suspect]

REACTIONS (1)
  - HEPATITIS ACUTE [None]
